FAERS Safety Report 24377352 (Version 1)
Quarter: 2024Q3

REPORT INFORMATION
  Report Type: Spontaneous
  Country: US (occurrence: US)
  Receive Date: 20240930
  Receipt Date: 20240930
  Transmission Date: 20241017
  Serious: No
  Sender: BRISTOL MYERS SQUIBB
  Company Number: US-BRISTOL-MYERS SQUIBB COMPANY-2024-152677

PATIENT
  Age: 56 Year
  Sex: Male

DRUGS (2)
  1. ORENCIA [Suspect]
     Active Substance: ABATACEPT
     Indication: Psoriatic arthropathy
     Route: 042
     Dates: start: 202310
  2. STERILE WATER [Concomitant]
     Active Substance: WATER
     Indication: Product used for unknown indication

REACTIONS (1)
  - Therapeutic response decreased [Unknown]
